FAERS Safety Report 19543588 (Version 5)
Quarter: 2021Q3

REPORT INFORMATION
  Report Type: Spontaneous
  Country: GB (occurrence: GB)
  Receive Date: 20210714
  Receipt Date: 20210928
  Transmission Date: 20211014
  Serious: Yes (Death, Hospitalization, Other)
  Sender: FDA-Public Use
  Company Number: GB-SA-2021SA227852

PATIENT
  Age: 33 Year
  Sex: Female

DRUGS (77)
  1. TRASTUZUMAB. [Suspect]
     Active Substance: TRASTUZUMAB
     Dosage: 451.5 MG, TIW
     Route: 042
     Dates: start: 20161111, end: 20170519
  2. TRASTUZUMAB. [Suspect]
     Active Substance: TRASTUZUMAB
     Dosage: 472.5 MG, TIW
     Route: 042
     Dates: start: 20170612, end: 20171228
  3. PERTUZUMAB. [Suspect]
     Active Substance: PERTUZUMAB
     Dosage: 420 MG, Q3W
     Route: 042
     Dates: start: 20160701, end: 20171228
  4. ENOXAPARIN [Concomitant]
     Active Substance: ENOXAPARIN
     Dosage: 40 MG, QD
     Route: 058
     Dates: start: 20170616, end: 20170623
  5. RANITIDINE. [Concomitant]
     Active Substance: RANITIDINE
     Dosage: 50 MG
     Route: 048
     Dates: start: 20170617, end: 20170618
  6. SEPTRIN [Concomitant]
     Active Substance: SULFAMETHOXAZOLE\TRIMETHOPRIM
     Dosage: 2112 MG
     Route: 042
     Dates: start: 20160811, end: 20160816
  7. ZOPICLONE [Concomitant]
     Active Substance: ZOPICLONE
     Dosage: 3.75 MG
     Route: 048
     Dates: start: 20170618, end: 20170619
  8. ORAMORPH SR SUSTAINED RELEASE [Concomitant]
     Active Substance: MORPHINE SULFATE
     Dosage: UNK
     Route: 048
     Dates: start: 20160828
  9. GENTAMICIN. [Concomitant]
     Active Substance: GENTAMICIN
     Dosage: 400 MG
     Route: 042
     Dates: start: 20180212, end: 20180212
  10. ONDANSETRON [Concomitant]
     Active Substance: ONDANSETRON
     Dosage: 8 MILLIGRAM 3/D
     Route: 065
     Dates: start: 20170616, end: 20170626
  11. SODIUM CHLORIDE. [Concomitant]
     Active Substance: SODIUM CHLORIDE
     Dosage: 5 ML, Q4W
     Route: 055
     Dates: start: 20170616, end: 20170623
  12. TRASTUZUMAB. [Suspect]
     Active Substance: TRASTUZUMAB
     Indication: PRODUCT USED FOR UNKNOWN INDICATION
     Dosage: 567 MG, Q3W (LOADING DOSE)
     Route: 041
     Dates: start: 20160609, end: 20160609
  13. TRASTUZUMAB. [Suspect]
     Active Substance: TRASTUZUMAB
     Dosage: 451.5 MG, TIW
     Route: 042
     Dates: start: 20170428, end: 20170519
  14. TRASTUZUMAB. [Suspect]
     Active Substance: TRASTUZUMAB
     Dosage: 451.5 MG, TIW
     Route: 042
     Dates: start: 20161202, end: 20170203
  15. TRASTUZUMAB EMTANSINE [Suspect]
     Active Substance: ADO-TRASTUZUMAB EMTANSINE
     Indication: HER2 POSITIVE BREAST CANCER
     Dosage: 280 MG, Q3W
     Route: 041
     Dates: start: 20180131, end: 20180131
  16. HYDROCORTISONE. [Concomitant]
     Active Substance: HYDROCORTISONE
     Dosage: 100 MG
     Route: 042
     Dates: start: 20160907, end: 20160907
  17. METOCLOPRAMIDE. [Concomitant]
     Active Substance: METOCLOPRAMIDE
     Dosage: 10 MG
     Route: 048
     Dates: start: 20160610, end: 20161111
  18. SALBUTAMOL [Concomitant]
     Active Substance: ALBUTEROL
     Dosage: 2.5 MG
     Route: 055
     Dates: start: 20170616, end: 20170618
  19. GENTAMICIN. [Concomitant]
     Active Substance: GENTAMICIN
     Dosage: 375 MG, QD
     Route: 065
     Dates: start: 20161009, end: 20161009
  20. DEXAMETHASON [DEXAMETHASONE] [Concomitant]
     Active Substance: DEXAMETHASONE
     Dosage: 4 MG
     Route: 048
     Dates: start: 20180110
  21. DEXAMETHASON [DEXAMETHASONE] [Concomitant]
     Active Substance: DEXAMETHASONE
     Dosage: 2 MG, QD
     Route: 048
     Dates: start: 20170902, end: 20180110
  22. DEXAMETHASON [DEXAMETHASONE] [Concomitant]
     Active Substance: DEXAMETHASONE
     Dosage: 2 MG, QD
     Route: 048
     Dates: start: 20200111
  23. TAMOXIFEN CITRATE. [Suspect]
     Active Substance: TAMOXIFEN CITRATE
     Indication: BREAST CANCER METASTATIC
     Dosage: 20 MG, QD
     Route: 065
     Dates: start: 20180213, end: 20180605
  24. TRASTUZUMAB. [Suspect]
     Active Substance: TRASTUZUMAB
     Dosage: 441 MG, TIW
     Route: 042
     Dates: start: 20160907, end: 20160926
  25. COTRIMOXAZOLE [Concomitant]
     Active Substance: SULFAMETHOXAZOLE\TRIMETHOPRIM
     Dosage: 483 MG
     Route: 065
     Dates: start: 20180131, end: 20180131
  26. LEVOMEPROMAZINE [Concomitant]
     Active Substance: LEVOMEPROMAZINE
     Dosage: 6.25 MG
     Route: 058
     Dates: start: 20170617, end: 20170617
  27. CLARITHROMYCIN. [Concomitant]
     Active Substance: CLARITHROMYCIN
     Dosage: 500 MG
     Route: 048
     Dates: start: 20180214, end: 20180301
  28. LANSOPRAZOLE. [Concomitant]
     Active Substance: LANSOPRAZOLE
     Dosage: 30 MG
     Route: 048
     Dates: start: 20160809
  29. LEVOFLOXACIN. [Concomitant]
     Active Substance: LEVOFLOXACIN
     Dosage: UNK
     Route: 065
     Dates: start: 20161009, end: 20161017
  30. DEXAMETHASON [DEXAMETHASONE] [Concomitant]
     Active Substance: DEXAMETHASONE
     Dosage: 8 MG, QD
     Route: 048
     Dates: start: 20160610, end: 20160611
  31. DIFFLAM [BENZYDAMINE HYDROCHLORIDE] [Concomitant]
     Active Substance: BENZYDAMINE HYDROCHLORIDE
     Dosage: UNK
     Dates: start: 20160722, end: 20160723
  32. TRASTUZUMAB. [Suspect]
     Active Substance: TRASTUZUMAB
     Dosage: 472.5 MG, TIW
     Route: 042
     Dates: start: 20170519, end: 20171228
  33. TRASTUZUMAB. [Suspect]
     Active Substance: TRASTUZUMAB
     Dosage: 441 MG
     Route: 042
     Dates: start: 20161202, end: 20170203
  34. ANASTROZOLE. [Suspect]
     Active Substance: ANASTROZOLE
     Indication: BREAST CANCER METASTATIC
     Dosage: 1 MG, QD
     Route: 048
     Dates: start: 20180606, end: 20190904
  35. AMOXICILLIN. [Concomitant]
     Active Substance: AMOXICILLIN
     Dosage: UNK, QD
     Route: 048
     Dates: start: 201712, end: 201712
  36. CIPROFLOXACIN. [Concomitant]
     Active Substance: CIPROFLOXACIN
     Dosage: UNK UNK, QD
     Route: 065
     Dates: start: 20161009, end: 20161009
  37. CODEINE [Concomitant]
     Active Substance: CODEINE
     Dosage: 10 ML
     Route: 048
     Dates: start: 20170619, end: 20170619
  38. OSELTAMIVIR [Concomitant]
     Active Substance: OSELTAMIVIR
     Dosage: 15 MG, BID
     Route: 048
     Dates: start: 20180213, end: 20180217
  39. RAMIPRIL. [Concomitant]
     Active Substance: RAMIPRIL
     Dosage: 2.3 MG, QD
     Route: 048
     Dates: start: 20160722
  40. SODIUM CHLORIDE. [Concomitant]
     Active Substance: SODIUM CHLORIDE
     Dosage: 58.75 ML
     Route: 048
     Dates: start: 20180105, end: 20180105
  41. DEXAMETHASON [DEXAMETHASONE] [Concomitant]
     Active Substance: DEXAMETHASONE
     Dosage: 8 MG, QD
     Route: 042
     Dates: start: 20160803, end: 20160805
  42. DEXAMETHASON [DEXAMETHASONE] [Concomitant]
     Active Substance: DEXAMETHASONE
     Dosage: 4 MG, BID
     Route: 048
     Dates: start: 20170616, end: 20170902
  43. DEXAMETHASON [DEXAMETHASONE] [Concomitant]
     Active Substance: DEXAMETHASONE
     Dosage: 4 MG, BID
     Route: 048
     Dates: start: 20160722, end: 20160723
  44. TAMOXIFEN CITRATE. [Suspect]
     Active Substance: TAMOXIFEN CITRATE
     Indication: HER2 POSITIVE BREAST CANCER
     Dosage: 20 UNK
     Route: 065
     Dates: start: 20170623, end: 20171228
  45. TRASTUZUMAB. [Suspect]
     Active Substance: TRASTUZUMAB
     Dosage: 451.5 MG, TIW
     Route: 042
     Dates: start: 20161021, end: 20161111
  46. CHLORPHENAMINE [Concomitant]
     Active Substance: CHLORPHENIRAMINE MALEATE
     Dosage: 10 MG
     Route: 042
     Dates: start: 20160907, end: 20160907
  47. CHLORPHENAMINE [Concomitant]
     Active Substance: CHLORPHENIRAMINE MALEATE
     Dosage: 10 MG
     Route: 042
     Dates: start: 20160928, end: 20170724
  48. FILGRASTIM [Concomitant]
     Active Substance: FILGRASTIM
     Dosage: 300 UG
     Route: 065
     Dates: start: 20160731, end: 20161112
  49. LEVETIRACETAM. [Concomitant]
     Active Substance: LEVETIRACETAM
     Dosage: 1 G
     Route: 042
     Dates: start: 20170616, end: 20170616
  50. CYCLIZINE [Concomitant]
     Active Substance: CYCLIZINE
     Dosage: 50 MILLIGRAM 3/DAY
     Route: 048
     Dates: start: 20170902
  51. DOCUSATE [Concomitant]
     Active Substance: DOCUSATE
     Dosage: UNK
     Route: 065
     Dates: start: 20160722, end: 20160724
  52. DOCETAXEL. [Suspect]
     Active Substance: DOCETAXEL
     Indication: HER2 POSITIVE BREAST CANCER
     Dosage: 130 MG, Q3W
     Route: 042
     Dates: start: 20160701
  53. DOCETAXEL. [Suspect]
     Active Substance: DOCETAXEL
     Dosage: 110 MG, Q3W
     Route: 042
     Dates: start: 20160907, end: 20161021
  54. PERTUZUMAB. [Suspect]
     Active Substance: PERTUZUMAB
     Indication: HER2 POSITIVE BREAST CANCER
     Dosage: 840 MG (LOADING DOSE
     Route: 042
     Dates: start: 20160609, end: 20160609
  55. TRASTUZUMAB EMTANSINE [Suspect]
     Active Substance: ADO-TRASTUZUMAB EMTANSINE
     Dosage: UNK
     Route: 065
  56. ENOXAPARIN [Concomitant]
     Active Substance: ENOXAPARIN
     Dosage: 1200 MG, QD
     Route: 058
     Dates: start: 20180212, end: 20180212
  57. MEROPENEM. [Concomitant]
     Active Substance: MEROPENEM
     Dosage: 1 G
     Route: 042
     Dates: start: 20160809, end: 20160817
  58. VANCOMYCIN [Concomitant]
     Active Substance: VANCOMYCIN
     Dosage: UNK
     Route: 065
     Dates: start: 20161009, end: 20161009
  59. DEXAMETHASON [DEXAMETHASONE] [Concomitant]
     Active Substance: DEXAMETHASONE
     Dosage: 1 DF, QD
     Route: 048
     Dates: start: 20160805, end: 201609
  60. TRASTUZUMAB. [Suspect]
     Active Substance: TRASTUZUMAB
     Dosage: 420 MG, TIW
     Route: 042
     Dates: start: 20160701, end: 20200727
  61. TRASTUZUMAB. [Suspect]
     Active Substance: TRASTUZUMAB
     Dosage: 420 MG, TIW
     Route: 042
     Dates: start: 20160907, end: 20160926
  62. ADCAL D3 [Concomitant]
     Active Substance: CALCIUM CARBONATE\CHOLECALCIFEROL
     Dosage: UNK, QD (0.5 UNK, QD
     Route: 048
     Dates: start: 20170621
  63. CODEINE LINCTUS [Concomitant]
     Active Substance: CHLOROFORM\CODEINE PHOSPHATE\DRIMIA MARITIMA BULB
     Dosage: 10 ML
     Route: 048
     Dates: start: 20170619, end: 20170619
  64. ENOXAPARIN [Concomitant]
     Active Substance: ENOXAPARIN
     Dosage: UNK UNK, QD
     Route: 058
     Dates: start: 20180214, end: 20180218
  65. SALBUTAMOL [Concomitant]
     Active Substance: ALBUTEROL
     Dosage: UNK
     Route: 055
     Dates: start: 20160822, end: 20160908
  66. C OXACIN [CIPROFLOXACIN HYDROCHLORIDE] [Concomitant]
     Dosage: 15 MG, QD
     Route: 048
  67. LANSOPRAZOLE. [Concomitant]
     Active Substance: LANSOPRAZOLE
     Dosage: 30 MG, QD
     Route: 048
     Dates: start: 20161010
  68. ONDANSETRON [Concomitant]
     Active Substance: ONDANSETRON
     Dosage: 8 MILLIGRAM 3/D
     Route: 048
     Dates: start: 20170902
  69. PARACETAMOL [Concomitant]
     Active Substance: ACETAMINOPHEN
     Dosage: 1 G, QD
     Route: 048
     Dates: start: 20160722, end: 20160724
  70. DEXAMETHASON [DEXAMETHASONE] [Concomitant]
     Active Substance: DEXAMETHASONE
     Dosage: UNK
     Route: 065
  71. TRIMETHOPRIM. [Concomitant]
     Active Substance: TRIMETHOPRIM
     Dosage: 50 MG, TID
     Route: 065
     Dates: start: 20170902
  72. DOCETAXEL. [Suspect]
     Active Substance: DOCETAXEL
     Dosage: 108 MG, TIW
     Route: 042
     Dates: start: 20161111, end: 20161111
  73. TRASTUZUMAB. [Suspect]
     Active Substance: TRASTUZUMAB
     Dosage: 420 MG, TIW
     Route: 042
     Dates: start: 20170224, end: 20170407
  74. TRASTUZUMAB. [Suspect]
     Active Substance: TRASTUZUMAB
     Dosage: 430.5 MG, TIW
     Route: 042
     Dates: start: 20170224, end: 20170407
  75. SALINE [SODIUM CHLORIDE] [Concomitant]
     Active Substance: SODIUM CHLORIDE
     Dosage: 5 ML, Q4W
     Route: 055
     Dates: start: 20170616, end: 20170623
  76. SODIUM CHLORIDE. [Concomitant]
     Active Substance: SODIUM CHLORIDE
     Dosage: 58.75 ML
     Route: 042
     Dates: start: 20180212, end: 20180214
  77. DEXAMETHASON [DEXAMETHASONE] [Concomitant]
     Active Substance: DEXAMETHASONE
     Dosage: 8 MG
     Route: 042
     Dates: start: 20170616, end: 20170616

REACTIONS (19)
  - Pain in jaw [Recovered/Resolved]
  - Vomiting [Not Recovered/Not Resolved]
  - Vomiting [Recovered/Resolved]
  - Hyponatraemia [Recovered/Resolved]
  - Lower respiratory tract infection [Recovered/Resolved]
  - Diarrhoea [Recovered/Resolved]
  - Dyspnoea [Not Recovered/Not Resolved]
  - Vomiting [Recovered/Resolved]
  - Off label use [Unknown]
  - Nausea [Recovered/Resolved]
  - Pneumonia [Recovered/Resolved]
  - Nausea [Recovered/Resolved]
  - Nausea [Recovered/Resolved]
  - Disease progression [Fatal]
  - Excessive eye blinking [Recovered/Resolved]
  - Seizure [Recovering/Resolving]
  - Chest pain [Recovered/Resolved]
  - Back pain [Recovering/Resolving]
  - Lower respiratory tract infection [Recovered/Resolved]

NARRATIVE: CASE EVENT DATE: 20160722
